FAERS Safety Report 8973801 (Version 1)
Quarter: 2012Q4

REPORT INFORMATION
  Report Type: 
  Country: US (occurrence: US)
  Receive Date: 20121218
  Receipt Date: 20121218
  Transmission Date: 20130627
  Serious: No
  Sender: FDA-Public Use
  Company Number: US-BRISTOL-MYERS SQUIBB COMPANY-16860025

PATIENT
  Sex: Female

DRUGS (8)
  1. ABILIFY [Suspect]
     Indication: BIPOLAR DISORDER
     Dosage: She currently taking 15mg but prescribed dose was 30 mg.recently taking 30mg
     Route: 048
  2. ZOLOFT [Suspect]
  3. LEVOTHYROXINE [Concomitant]
  4. FOLIC ACID [Concomitant]
  5. URSO [Concomitant]
     Dosage: Forte
  6. VITAMIN E [Concomitant]
  7. MULTIVITAMIN [Concomitant]
     Route: 042
  8. VITAMIN B COMPLEX [Concomitant]

REACTIONS (4)
  - Rash pruritic [Unknown]
  - Vision blurred [Unknown]
  - Skin discolouration [Unknown]
  - Dry skin [Unknown]
